FAERS Safety Report 15012857 (Version 1)
Quarter: 2018Q2

REPORT INFORMATION
  Report Type: Spontaneous
  Country: RU (occurrence: RU)
  Receive Date: 20180614
  Receipt Date: 20180614
  Transmission Date: 20180711
  Serious: Yes (Other)
  Sender: FDA-Public Use
  Company Number: RU-PFIZER INC-2018236498

PATIENT
  Age: 63 Year
  Sex: Male

DRUGS (2)
  1. EVEROLIMUS. [Concomitant]
     Active Substance: EVEROLIMUS
  2. SUTENT [Suspect]
     Active Substance: SUNITINIB MALATE
     Indication: RENAL CANCER
     Dosage: 50 MG, DAILY, 2 WEEKS ON 1 WEEK OFF
     Route: 048
     Dates: start: 201701, end: 20170918

REACTIONS (8)
  - General physical health deterioration [Unknown]
  - Oedema peripheral [Unknown]
  - Gastrointestinal disorder [Unknown]
  - Blood pressure decreased [Unknown]
  - Dyspnoea [Unknown]
  - Pleural effusion [Unknown]
  - Ascites [Unknown]
  - Cough [Unknown]

NARRATIVE: CASE EVENT DATE: 20180603
